FAERS Safety Report 10398536 (Version 2)
Quarter: 2014Q3

REPORT INFORMATION
  Report Type: Report from Study
  Country: MX (occurrence: MX)
  Receive Date: 20140821
  Receipt Date: 20140821
  Transmission Date: 20150326
  Serious: Yes (Life-Threatening, Disabling)
  Sender: FDA-Public Use
  Company Number: PHHY2012MX049959

PATIENT
  Age: 64 Year
  Sex: Female

DRUGS (5)
  1. SALINE//SODIUM CHLORIDE [Concomitant]
     Indication: PROPHYLAXIS
     Dosage: UNK UKN, UNK
  2. ACLASTA [Suspect]
     Active Substance: ZOLEDRONIC ACID
     Dosage: 5 MG/100 ML, 1 APPLICATION EACH YEAR
     Route: 042
     Dates: start: 201308, end: 201308
  3. ACLASTA [Suspect]
     Active Substance: ZOLEDRONIC ACID
     Indication: OSTEOPOROSIS
     Dosage: 5 MG/100 ML, 1 APPLICATION EACH YEAR
     Route: 042
     Dates: start: 20110707
  4. LEVOTHYROXINE [Concomitant]
     Active Substance: LEVOTHYROXINE
     Indication: HYPOTHYROIDISM
     Dosage: 1.5 UKN, DAILY
     Dates: start: 1986
  5. ACLASTA [Suspect]
     Active Substance: ZOLEDRONIC ACID
     Dosage: 5 MG/100 ML, 1 APPLICATION EACH YEAR
     Route: 042
     Dates: start: 20120707

REACTIONS (15)
  - Infusion site pain [Recovering/Resolving]
  - Vomiting [Recovered/Resolved]
  - Pain in extremity [Recovering/Resolving]
  - Bone pain [Recovered/Resolved]
  - Arthralgia [Recovering/Resolving]
  - Pain [Recovering/Resolving]
  - Incorrect drug administration rate [Recovered/Resolved]
  - Feeling abnormal [Unknown]
  - Insomnia [Recovering/Resolving]
  - Neuritis [Recovering/Resolving]
  - Back pain [Recovering/Resolving]
  - Depression [Recovering/Resolving]
  - Neck pain [Recovering/Resolving]
  - Infusion site coldness [Recovering/Resolving]
  - Headache [Recovered/Resolved]

NARRATIVE: CASE EVENT DATE: 20120707
